FAERS Safety Report 23458764 (Version 1)
Quarter: 2024Q1

REPORT INFORMATION
  Report Type: Report from Study
  Country: CA (occurrence: CA)
  Receive Date: 20240130
  Receipt Date: 20240130
  Transmission Date: 20240409
  Serious: Yes (Hospitalization)
  Sender: FDA-Public Use
  Company Number: CA-ABBVIE-5605328

PATIENT
  Sex: Male

DRUGS (1)
  1. HUMIRA [Suspect]
     Active Substance: ADALIMUMAB
     Indication: Crohn^s disease
     Route: 058
     Dates: start: 20091203

REACTIONS (4)
  - Immune thrombocytopenia [Recovered/Resolved]
  - Oral blood blister [Unknown]
  - Gingival bleeding [Unknown]
  - Rash macular [Unknown]

NARRATIVE: CASE EVENT DATE: 20100201
